FAERS Safety Report 9657102 (Version 2)
Quarter: 2013Q4

REPORT INFORMATION
  Report Type: Spontaneous
  Country: US (occurrence: US)
  Receive Date: 20131030
  Receipt Date: 20131030
  Transmission Date: 20140711
  Serious: Yes (Hospitalization, Other)
  Sender: FDA-Public Use
  Company Number: US-GILEAD-2013-0084598

PATIENT
  Sex: Female

DRUGS (2)
  1. LETAIRIS [Suspect]
     Indication: PULMONARY HYPERTENSION
     Dosage: 5 MG, QD
     Route: 048
     Dates: start: 20130802, end: 20130902
  2. LETAIRIS [Suspect]
     Indication: CONNECTIVE TISSUE DISORDER

REACTIONS (2)
  - Respiratory failure [Unknown]
  - Swelling [Unknown]
